FAERS Safety Report 5151862-4 (Version None)
Quarter: 2006Q4

REPORT INFORMATION
  Report Type: 
  Country: None (occurrence: None)
  Receive Date: 20061107
  Receipt Date: 20061023
  Transmission Date: 20070319
  Serious: Yes (Death)
  Sender: FDA-Public Use
  Company Number: B0443341A

PATIENT
  Age: 35 Year
  Sex: 0

DRUGS (3)
  1. LAMICTAL [Suspect]
  2. VENLAFAXINE HCL [Suspect]
     Dosage: SEE TEXT
  3. RISPERIDONE [Suspect]

REACTIONS (2)
  - CARDIO-RESPIRATORY ARREST [None]
  - COMPLETED SUICIDE [None]
